FAERS Safety Report 7926342-0 (Version None)
Quarter: 2011Q4

REPORT INFORMATION
  Report Type: 
  Country: None (occurrence: None)
  Receive Date: 20111118
  Receipt Date: 20111109
  Transmission Date: 20120403
  Serious: No
  Sender: FDA-Public Use
  Company Number: US-BIOGENIDEC-2011BI036044

PATIENT
  Age: 46 Year
  Sex: Female

DRUGS (2)
  1. TYSABRI [Suspect]
     Indication: MULTIPLE SCLEROSIS
     Route: 042
     Dates: start: 20110728, end: 20110826
  2. AVONEX [Concomitant]
     Indication: MULTIPLE SCLEROSIS
     Route: 030

REACTIONS (10)
  - SOMNOLENCE [None]
  - PAIN [None]
  - MUSCLE SPASTICITY [None]
  - FALL [None]
  - MULTIPLE SCLEROSIS [None]
  - FATIGUE [None]
  - HEADACHE [None]
  - GAIT DISTURBANCE [None]
  - MULTIPLE SCLEROSIS RELAPSE [None]
  - SENSORY DISTURBANCE [None]
